FAERS Safety Report 6250054-5 (Version None)
Quarter: 2009Q2

REPORT INFORMATION
  Report Type: 
  Country: None (occurrence: None)
  Receive Date: 20090625
  Receipt Date: 20090617
  Transmission Date: 20091009
  Serious: Yes (Hospitalization)
  Sender: FDA-Public Use
  Company Number: 1-18868585

PATIENT

DRUGS (1)
  1. IBUPROFEN [Suspect]
     Indication: PATENT DUCTUS ARTERIOSUS
     Dosage: 10MG/KG, X1, 5MG/KG, X2, INTRAVENOUS
     Route: 042

REACTIONS (4)
  - INTESTINAL PERFORATION [None]
  - NECROTISING ENTEROCOLITIS NEONATAL [None]
  - RENAL FAILURE ACUTE [None]
  - URINE ANALYSIS ABNORMAL [None]
